FAERS Safety Report 9091561 (Version 1)
Quarter: 2013Q1

REPORT INFORMATION
  Report Type: Report from Study
  Country: US (occurrence: US)
  Receive Date: 20130131
  Receipt Date: 20130131
  Transmission Date: 20140127
  Serious: No
  Sender: FDA-Public Use
  Company Number: US-ABBOTT-12P-163-1003188-00

PATIENT
  Age: 49 Year
  Sex: Female

DRUGS (15)
  1. HUMIRA [Suspect]
     Indication: COLITIS ULCERATIVE
     Dosage: 160 MG LOADING DOSE
     Dates: start: 20121029
  2. CALCIUM [Concomitant]
     Indication: BONE DISORDER
  3. NIACIN [Concomitant]
     Indication: PANCREATIC DISORDER
  4. VITAMIN D [Concomitant]
     Indication: PRODUCT USED FOR UNKNOWN INDICATION
  5. LIPOFLAVONOID [Concomitant]
     Indication: TINNITUS
  6. SIMVASTATIN [Concomitant]
     Indication: BLOOD CHOLESTEROL INCREASED
  7. FENOFIBRATE [Concomitant]
     Indication: BLOOD CHOLESTEROL INCREASED
  8. ESTROGEL [Concomitant]
     Indication: HORMONE LEVEL ABNORMAL
     Dosage: 0.06/50MG, 2 PUMPS DAILY
  9. ZYRTEC [Concomitant]
     Indication: HYPERSENSITIVITY
  10. CLOBETASOL PROPIONATE [Concomitant]
     Indication: ECZEMA
  11. NEO-POLY-HC-OTIC-SOL [Concomitant]
     Indication: TINNITUS
     Dosage: 2 - 3 TIMES PER DAY
     Route: 001
  12. DULERA [Concomitant]
     Indication: ASTHMA
     Dosage: 200MCG/5MCG TWICE DAILY
  13. PROVENTIL [Concomitant]
     Indication: ASTHMA
  14. ZOMIG [Concomitant]
     Indication: HEADACHE
  15. HYOSCYAMINE [Concomitant]
     Indication: PANCREATIC DISORDER

REACTIONS (2)
  - Injection site pain [Recovering/Resolving]
  - Injection site bruising [Recovering/Resolving]
